FAERS Safety Report 5507730-9 (Version None)
Quarter: 2007Q4

REPORT INFORMATION
  Report Type: 
  Country: None (occurrence: None)
  Receive Date: 20071105
  Receipt Date: 20071105
  Transmission Date: 20080405
  Serious: Yes (Other)
  Sender: FDA-Public Use
  Company Number: None

PATIENT
  Age: 46 Year
  Sex: Male
  Weight: 140.6151 kg

DRUGS (2)
  1. PROVIGIL [Suspect]
     Indication: ANXIETY
     Dosage: 200 MG ONCE DAILY PO
     Route: 048
     Dates: start: 20060101, end: 20071107
  2. PROVIGIL [Suspect]
     Indication: FATIGUE
     Dosage: 200 MG ONCE DAILY PO
     Route: 048
     Dates: start: 20060101, end: 20071107

REACTIONS (2)
  - DRUG DOSE OMISSION [None]
  - RASH [None]
